FAERS Safety Report 10458191 (Version 5)
Quarter: 2014Q4

REPORT INFORMATION
  Report Type: Report from Study
  Country: IL (occurrence: IL)
  Receive Date: 20140917
  Receipt Date: 20141226
  Transmission Date: 20150528
  Serious: Yes (Hospitalization)
  Sender: FDA-Public Use
  Company Number: IL-ROCHE-1461967

PATIENT
  Age: 62 Year
  Sex: Female

DRUGS (10)
  1. OBINUTUZUMAB [Suspect]
     Active Substance: OBINUTUZUMAB
     Dosage: THERAPY WAS CONTINUED AS PER PROTOCOL ON: 23/SEP/2014 (C1D8), 01/OCT/2014 (C1D15), 19/OCT/2014 (C2D1
     Route: 042
     Dates: start: 20140923
  2. BENDAMUSTINE [Suspect]
     Active Substance: BENDAMUSTINE
     Indication: CHRONIC LYMPHOCYTIC LEUKAEMIA REFRACTORY
     Dosage: C1D1?MOST RECENT DOSE PRIOR TO ONSET OF FEBRILE NEUTROPENIA: 04/SEP/2014?THERAPY WAS CONTINUED AS PE
     Route: 042
     Dates: start: 20140903
  3. OBINUTUZUMAB [Suspect]
     Active Substance: OBINUTUZUMAB
     Dosage: C1D2?MOST RECENT DOSE PRIOR TO ONSET OF FEBRILE NEUTROPENIA: 04/SEP/2014
     Route: 042
     Dates: start: 20140904, end: 20140904
  4. PHENERGAN [Concomitant]
     Active Substance: PROMETHAZINE HYDROCHLORIDE
     Indication: PROPHYLAXIS
     Route: 042
     Dates: start: 20140903
  5. PARACETAMOL [Concomitant]
     Active Substance: ACETAMINOPHEN
     Indication: PROPHYLAXIS
     Route: 048
     Dates: start: 20140903
  6. DEXAMETHASONE. [Concomitant]
     Active Substance: DEXAMETHASONE
     Indication: PROPHYLAXIS
     Route: 042
     Dates: start: 20140903
  7. OBINUTUZUMAB [Suspect]
     Active Substance: OBINUTUZUMAB
     Indication: CHRONIC LYMPHOCYTIC LEUKAEMIA REFRACTORY
     Dosage: C1D1?MOST RECENT DOSE PRIOR TO ONSET OF FEBRILE NEUTROPENIA: 04/SEP/2014
     Route: 042
     Dates: start: 20140903, end: 20140903
  8. CIPRALEX [Concomitant]
     Active Substance: ESCITALOPRAM OXALATE
     Indication: PROPHYLAXIS
     Route: 048
     Dates: start: 201406
  9. IMURAN [Concomitant]
     Active Substance: AZATHIOPRINE
     Route: 048
     Dates: start: 2014
  10. LORATADINE. [Concomitant]
     Active Substance: LORATADINE
     Indication: PROPHYLAXIS
     Route: 048
     Dates: start: 20140903

REACTIONS (1)
  - Febrile neutropenia [Recovered/Resolved]

NARRATIVE: CASE EVENT DATE: 20140910
